FAERS Safety Report 7997111-0 (Version None)
Quarter: 2011Q4

REPORT INFORMATION
  Report Type: 
  Country: None (occurrence: None)
  Receive Date: 20111221
  Receipt Date: 20111212
  Transmission Date: 20120403
  Serious: Yes (Hospitalization)
  Sender: FDA-Public Use
  Company Number: IL-JNJFOC-20111207074

PATIENT
  Sex: Male

DRUGS (11)
  1. NORVASC [Concomitant]
     Route: 065
     Dates: start: 20101103
  2. ENALAPRIL MALEATE [Concomitant]
     Route: 065
  3. NOVORAPID [Concomitant]
     Route: 065
     Dates: start: 20101103
  4. METOPROLOL TARTRATE [Concomitant]
     Route: 065
  5. ASPIRIN [Suspect]
     Indication: PRODUCT USED FOR UNKNOWN INDICATION
     Route: 065
     Dates: start: 20050901
  6. ABCIXIMAB [Suspect]
     Indication: ACUTE CORONARY SYNDROME
     Route: 042
     Dates: start: 20101103, end: 20101103
  7. LIPITOR [Concomitant]
     Route: 065
     Dates: start: 20050901
  8. LANTUS [Concomitant]
     Route: 065
  9. PLAVIX [Suspect]
     Indication: PRODUCT USED FOR UNKNOWN INDICATION
     Route: 065
  10. BONDORMIN [Concomitant]
     Route: 065
  11. TAMSULOSIN HYDROCHLORIDE [Concomitant]
     Route: 065
     Dates: start: 20101103

REACTIONS (1)
  - RECTAL HAEMORRHAGE [None]
